FAERS Safety Report 8442645 (Version 3)
Quarter: 2013Q4

REPORT INFORMATION
  Report Type: Spontaneous
  Country: GB (occurrence: None)
  Receive Date: 20120223
  Receipt Date: 20131220
  Transmission Date: 20140711
  Serious: Yes (Hospitalization, Other)
  Sender: FDA-Public Use
  Company Number: GB-025235

PATIENT
  Age: 80 Year
  Sex: Male
  Weight: 76.3 kg

DRUGS (5)
  1. CHLORAMBUCIL (CHLORAMBUCIL) (TABLET) [Suspect]
     Indication: CHRONIC LYMPHOCYTIC LEUKAEMIA
     Dosage: 18 MG CYCLIC, ORAL
     Route: 048
     Dates: start: 20111109, end: 20120515
  2. RITUXIMAB [Suspect]
     Indication: CHRONIC LYMPHOCYTIC LEUKAEMIA
     Dosage: 950 MILLIGRAM, 1 IN 1 MONTHS, INTRAVENOUS (NOT OTHERWISE SPECIFIED)?
     Route: 042
     Dates: start: 20111109, end: 20120515
  3. ACICLOVIR [Concomitant]
  4. DOMPERIDONE (DOMPERIDONE) [Concomitant]
  5. DAPSONE (DAPSONE) [Concomitant]

REACTIONS (5)
  - Neutropenic sepsis [None]
  - Cough [None]
  - Condition aggravated [None]
  - Anaemia [None]
  - Lung infection [None]
